FAERS Safety Report 13074346 (Version 3)
Quarter: 2019Q3

REPORT INFORMATION
  Report Type: Spontaneous
  Country: FR (occurrence: FR)
  Receive Date: 20161230
  Receipt Date: 20190816
  Transmission Date: 20191004
  Serious: Yes (Other)
  Sender: FDA-Public Use
  Company Number: FR-SA-2016SA235060

PATIENT
  Age: 32 Year
  Sex: Female

DRUGS (7)
  1. LEVOTHYROX [Suspect]
     Active Substance: LEVOTHYROXINE
     Indication: HYPOTHYROIDISM
     Dosage: 25 UG,QD
     Route: 048
     Dates: start: 20161012
  2. INOFER [Suspect]
     Active Substance: FERROUS SUCCINATE\SUCCINIC ACID
     Indication: MINERAL SUPPLEMENTATION
     Dosage: 100 MG,QD
     Route: 048
     Dates: start: 201610
  3. KINERET [Suspect]
     Active Substance: ANAKINRA
     Indication: PERICARDITIS
     Dosage: 33.33 MG,TID
     Route: 058
     Dates: start: 20120217, end: 20161201
  4. LEVOTHYROX [Suspect]
     Active Substance: LEVOTHYROXINE
     Dosage: 50 UG,QD
     Route: 048
     Dates: start: 20161012
  5. PROGESTAN [Suspect]
     Active Substance: PROGESTERONE
     Indication: IN VITRO FERTILISATION
     Dosage: 600 MG,QD
     Route: 067
     Dates: start: 201610
  6. LOVENOX [Suspect]
     Active Substance: ENOXAPARIN SODIUM
     Indication: THROMBOSIS PROPHYLAXIS
     Dosage: 4000 IU,QD
     Route: 058
     Dates: start: 201609, end: 20161119
  7. KINERET [Suspect]
     Active Substance: ANAKINRA
     Dosage: 100 MG
     Route: 058
     Dates: start: 20161130

REACTIONS (2)
  - Abortion spontaneous [Unknown]
  - Exposure during pregnancy [Unknown]

NARRATIVE: CASE EVENT DATE: 20161201
